FAERS Safety Report 11923529 (Version 2)
Quarter: 2016Q1

REPORT INFORMATION
  Report Type: Spontaneous
  Country: US (occurrence: US)
  Receive Date: 20160118
  Receipt Date: 20160118
  Transmission Date: 20160526
  Serious: Yes (Hospitalization, Other)
  Sender: FDA-Public Use
  Company Number: CHPA2016US000728

PATIENT
  Age: 74 Year
  Sex: Female

DRUGS (1)
  1. VOLTAREN [Suspect]
     Active Substance: DICLOFENAC SODIUM
     Indication: ARTHRITIS
     Dosage: SMALL AMOUNT, PRN
     Route: 061
     Dates: start: 2011

REACTIONS (8)
  - Expired product administered [Unknown]
  - Patella fracture [Recovered/Resolved]
  - Arthritis [Not Recovered/Not Resolved]
  - Arthritis infective [Recovered/Resolved]
  - Fall [Recovered/Resolved]
  - Foreign body [Recovered/Resolved]
  - Feeling hot [Recovered/Resolved]
  - Wrong technique in product usage process [Unknown]

NARRATIVE: CASE EVENT DATE: 2011
